FAERS Safety Report 6960275-1 (Version None)
Quarter: 2010Q3

REPORT INFORMATION
  Report Type: 
  Country: None (occurrence: None)
  Receive Date: 20100901
  Receipt Date: 20100820
  Transmission Date: 20110219
  Serious: Yes (Other)
  Sender: FDA-Public Use
  Company Number: US-PFIZER INC-2009255164

PATIENT
  Sex: Female
  Weight: 85.3 kg

DRUGS (7)
  1. SUTENT [Suspect]
     Indication: RENAL CELL CARCINOMA
     Dosage: 50 MG, 1X/DAY, 4 WEEKS ON 2 WEEKS OFF
     Route: 048
     Dates: start: 20090723
  2. CALCIUM [Concomitant]
     Dosage: UNK
  3. PROZAC [Concomitant]
     Indication: HYPERSENSITIVITY
     Dosage: UNK
  4. PROZAC [Concomitant]
     Indication: HEADACHE
  5. PRILOSEC [Concomitant]
     Indication: DYSPEPSIA
     Dosage: 20 MG, AS NEEDED
     Route: 048
  6. XANAX [Concomitant]
     Indication: SLEEP DISORDER
     Dosage: UNK
     Route: 048
  7. TYLENOL-500 [Concomitant]
     Indication: SLEEP DISORDER
     Dosage: 25 MG, AS NEEDED
     Route: 048

REACTIONS (10)
  - AMNESIA [None]
  - BLOOD COUNT ABNORMAL [None]
  - DEHYDRATION [None]
  - DIARRHOEA [None]
  - DYSPEPSIA [None]
  - DYSPNOEA [None]
  - FATIGUE [None]
  - HYPOTHYROIDISM [None]
  - IMMUNE SYSTEM DISORDER [None]
  - STOMATITIS [None]
